FAERS Safety Report 22276619 (Version 2)
Quarter: 2023Q2

REPORT INFORMATION
  Report Type: Spontaneous
  Country: BR (occurrence: BR)
  Receive Date: 20230503
  Receipt Date: 20230621
  Transmission Date: 20230722
  Serious: No
  Sender: FDA-Public Use
  Company Number: BR-BoehringerIngelheim-2023-BI-233995

PATIENT
  Age: 83 Year
  Sex: Male

DRUGS (6)
  1. FENOTEROL HYDROBROMIDE\IPRATROPIUM BROMIDE [Suspect]
     Active Substance: FENOTEROL HYDROBROMIDE\IPRATROPIUM BROMIDE
     Indication: Chronic obstructive pulmonary disease
     Dosage: FORM OF ADMIN: AEROSOL. ?ONCE, THE NEXT USE COULD ONLY OCCUR AFTER A PERIOD OF 6 HOURS, IF NECESSARY
     Route: 048
  2. FENOTEROL HYDROBROMIDE\IPRATROPIUM BROMIDE [Suspect]
     Active Substance: FENOTEROL HYDROBROMIDE\IPRATROPIUM BROMIDE
     Indication: Emphysema
  3. SPIRIVA RESPIMAT [Suspect]
     Active Substance: TIOTROPIUM BROMIDE
     Indication: Chronic obstructive pulmonary disease
     Dosage: FORM OF ADMIN: AEROSOL.?2.5 MCG, ONCE DAILY AT 6:00 PM, 2 CONSECUTIVE PUFFS.
     Route: 048
     Dates: start: 2003
  4. BEROTEC [Suspect]
     Active Substance: FENOTEROL HYDROBROMIDE
     Indication: Product used for unknown indication
  5. ATROVENT [Suspect]
     Active Substance: IPRATROPIUM BROMIDE
     Indication: Product used for unknown indication
  6. Alenia [Concomitant]
     Indication: Product used for unknown indication

REACTIONS (6)
  - Emphysema [Not Recovered/Not Resolved]
  - Dyspnoea [Not Recovered/Not Resolved]
  - Limb injury [Recovered/Resolved]
  - Erysipelas [Recovered/Resolved]
  - Malaise [Unknown]
  - Asthma [Unknown]

NARRATIVE: CASE EVENT DATE: 20030101
